FAERS Safety Report 4547556-6 (Version None)
Quarter: 2004Q4

REPORT INFORMATION
  Report Type: 
  Country: None (occurrence: None)
  Receive Date: 20041227
  Receipt Date: 20041109
  Transmission Date: 20050328
  Serious: No
  Sender: FDA-Public Use
  Company Number: 04P-163-0280035-00

PATIENT
  Age: 62 Year
  Sex: Female
  Weight: 128.6 kg

DRUGS (8)
  1. HUMIRA [Suspect]
     Indication: RHEUMATOID ARTHRITIS
     Dosage: SEE IMAGE
     Route: 058
     Dates: start: 20030101, end: 20030101
  2. HUMIRA [Suspect]
     Indication: RHEUMATOID ARTHRITIS
     Dosage: SEE IMAGE
     Route: 058
     Dates: start: 20030101
  3. FLU VACCINE [Concomitant]
  4. GLIPIZIDE [Concomitant]
  5. HYDROXYCHLOR [Concomitant]
  6. CALCIUM GLUCONATE [Concomitant]
  7. ACETYLSALICYLIC ACID SRT [Concomitant]
  8. TYLENOL [Concomitant]

REACTIONS (3)
  - DRUG INEFFECTIVE [None]
  - HOT FLUSH [None]
  - NAIL DISCOLOURATION [None]
